FAERS Safety Report 16488746 (Version 1)
Quarter: 2019Q2

REPORT INFORMATION
  Report Type: Report from Study
  Country: DZ (occurrence: DZ)
  Receive Date: 20190627
  Receipt Date: 20190627
  Transmission Date: 20190711
  Serious: Yes (Death, Hospitalization, Other)
  Sender: FDA-Public Use
  Company Number: DZ-ACTELION-A-US2019-192267

PATIENT
  Sex: Female

DRUGS (1)
  1. VENTAVIS [Suspect]
     Active Substance: ILOPROST
     Indication: PULMONARY ARTERIAL HYPERTENSION
     Dosage: 2.5 UNK
     Route: 055
     Dates: start: 20190320, end: 20190609

REACTIONS (3)
  - Diarrhoea [Unknown]
  - Cardiac arrest [Fatal]
  - Aphthous ulcer [Unknown]

NARRATIVE: CASE EVENT DATE: 20190609
